FAERS Safety Report 5770939-3 (Version None)
Quarter: 2008Q2

REPORT INFORMATION
  Report Type: 
  Country: None (occurrence: None)
  Receive Date: 20080613
  Receipt Date: 20080519
  Transmission Date: 20081010
  Serious: No
  Sender: FDA-Public Use
  Company Number: US-ABBOTT-08P-163-0452681-00

PATIENT
  Sex: Female
  Weight: 109.87 kg

DRUGS (12)
  1. HUMIRA [Suspect]
     Indication: CROHN'S DISEASE
     Route: 058
     Dates: start: 20080420, end: 20080420
  2. HUMIRA [Suspect]
     Route: 058
  3. HUMIRA [Suspect]
     Route: 058
  4. BUDESONIDE [Concomitant]
     Indication: CROHN'S DISEASE
     Route: 048
     Dates: start: 20080330
  5. DIGESTIVE ADVANTAGE [Concomitant]
     Indication: CROHN'S DISEASE
     Route: 048
     Dates: start: 20080330
  6. MESALAMINE [Concomitant]
     Indication: CROHN'S DISEASE
     Route: 048
     Dates: start: 20080330
  7. ATORVASTATIN CALCIUM [Concomitant]
     Indication: BLOOD CHOLESTEROL INCREASED
     Route: 048
     Dates: start: 20060101
  8. ESOMEPRAZOLE MAGNESIUM [Concomitant]
     Indication: GASTROOESOPHAGEAL REFLUX DISEASE
     Dosage: TAKING ON AND OFF
     Route: 048
     Dates: start: 20080201
  9. PRITOR [Concomitant]
     Indication: HYPERTENSION
     Route: 048
     Dates: start: 20060101
  10. CIPROFLOXACIN HCL [Concomitant]
     Indication: PROPHYLAXIS
     Route: 048
     Dates: start: 20080323
  11. METRONIDAZOLE HCL [Concomitant]
     Indication: PROPHYLAXIS
     Route: 048
     Dates: start: 20080323
  12. METFORMIN HCL [Concomitant]
     Indication: BLOOD GLUCOSE INCREASED
     Route: 048

REACTIONS (4)
  - ABDOMINAL PAIN UPPER [None]
  - CROHN'S DISEASE [None]
  - OVERDOSE [None]
  - VOMITING [None]
